FAERS Safety Report 11021591 (Version 2)
Quarter: 2015Q2

REPORT INFORMATION
  Report Type: Spontaneous
  Country: FR (occurrence: FR)
  Receive Date: 20150413
  Receipt Date: 20150417
  Transmission Date: 20150821
  Serious: Yes (Hospitalization)
  Sender: FDA-Public Use
  Company Number: FR-BAYER-2015-103598

PATIENT
  Age: 63 Year
  Sex: Male

DRUGS (20)
  1. CIFLOX [Suspect]
     Active Substance: CIPROFLOXACIN
     Dosage: UNK
     Route: 048
     Dates: start: 20150117, end: 20150204
  2. AIROMIR [Concomitant]
     Active Substance: ALBUTEROL SULFATE
     Dosage: 1 DF, QD
  3. LEVEMIR [Concomitant]
     Active Substance: INSULIN DETEMIR
     Dosage: 30 IU, BID
     Route: 057
  4. TAZOCILLINE [Suspect]
     Active Substance: PIPERACILLIN SODIUM\TAZOBACTAM SODIUM
     Dosage: 4 G, QD
     Route: 042
     Dates: start: 20150115, end: 20150202
  5. FLAGYL [Suspect]
     Active Substance: METRONIDAZOLE\METRONIDAZOLE HYDROCHLORIDE
     Dosage: 250 MG, UNK
     Route: 048
     Dates: start: 20150115, end: 20150117
  6. TENORMIN [Concomitant]
     Active Substance: ATENOLOL
     Dosage: 0.5 DF, QD
     Route: 048
  7. HUMALOG [Concomitant]
     Active Substance: INSULIN LISPRO
     Dosage: 20 IU, TID
     Route: 058
  8. BACTRIM [Concomitant]
     Active Substance: SULFAMETHOXAZOLE\TRIMETHOPRIM
     Dosage: UNK
     Route: 048
     Dates: start: 20150128, end: 20150202
  9. RENVELA [Concomitant]
     Active Substance: SEVELAMER CARBONATE
     Dosage: 1 DF, TID
  10. CALCIUM ACETATE. [Concomitant]
     Active Substance: CALCIUM ACETATE
     Dosage: 2 DF, 6ID
  11. KARDEGIC [Concomitant]
     Active Substance: ASPIRIN LYSINE
     Dosage: 1 DF, UNK
     Route: 048
  12. TAHOR [Concomitant]
     Active Substance: ATORVASTATIN CALCIUM
     Dosage: 40 MG, UNK
     Route: 048
  13. VANCOMYCIN [Suspect]
     Active Substance: VANCOMYCIN
     Dosage: 1 G, UNK
     Route: 042
     Dates: start: 20150115, end: 20150117
  14. PREVISCAN [Concomitant]
     Active Substance: FLUINDIONE
     Dosage: 20 MG, UNK
  15. ARANESP [Concomitant]
     Active Substance: DARBEPOETIN ALFA
     Dosage: 40 ?G, Q1MON
  16. LASILIX [Concomitant]
     Active Substance: FUROSEMIDE
     Dosage: 500 MG, BID
     Route: 048
  17. DALACINE [Suspect]
     Active Substance: CLINDAMYCIN HYDROCHLORIDE
     Dosage: UNK
     Dates: start: 20150117, end: 20150204
  18. SERETIDE [Concomitant]
     Active Substance: FLUTICASONE FUROATE\SALMETEROL XINAFOATE
     Dosage: UNK UNK, TID
  19. SPIRIVA [Concomitant]
     Active Substance: TIOTROPIUM BROMIDE MONOHYDRATE
     Dosage: 14 DF, TID
  20. KAYEXALATE [Concomitant]
     Active Substance: SODIUM POLYSTYRENE SULFONATE
     Dosage: 1 DF, 4IW
     Route: 048

REACTIONS (6)
  - Rash maculo-papular [Recovered/Resolved]
  - Purpura [Recovered/Resolved]
  - Conjunctivitis [Recovered/Resolved]
  - Eosinophilia [Recovered/Resolved]
  - Toxic skin eruption [Recovered/Resolved]
  - C-reactive protein increased [Recovered/Resolved]

NARRATIVE: CASE EVENT DATE: 20150204
